FAERS Safety Report 7395293-5 (Version None)
Quarter: 2011Q1

REPORT INFORMATION
  Report Type: 
  Country: None (occurrence: None)
  Receive Date: 20110331
  Receipt Date: 20110331
  Transmission Date: 20110831
  Serious: Yes (Hospitalization)
  Sender: FDA-Public Use
  Company Number: None

PATIENT
  Age: 82 Year
  Sex: Female

DRUGS (1)
  1. DABIGATRAN 150MG BID PO [Suspect]
     Dosage: 150MG BID PO
     Route: 048

REACTIONS (2)
  - INCORRECT DOSE ADMINISTERED [None]
  - GASTROINTESTINAL HAEMORRHAGE [None]
